FAERS Safety Report 18256172 (Version 5)
Quarter: 2020Q4

REPORT INFORMATION
  Report Type: Report from Study
  Country: JP (occurrence: JP)
  Receive Date: 20200911
  Receipt Date: 20201231
  Transmission Date: 20210113
  Serious: Yes (Hospitalization)
  Sender: FDA-Public Use
  Company Number: JP-ASTELLAS-2020JP012005

PATIENT
  Age: 83 Year
  Sex: Male

DRUGS (41)
  1. RECOMODULIN [Concomitant]
     Active Substance: THROMBOMODULIN ALFA
     Indication: DISSEMINATED INTRAVASCULAR COAGULATION
     Route: 041
     Dates: start: 20200905, end: 20200907
  2. NEXIUM [Concomitant]
     Active Substance: ESOMEPRAZOLE MAGNESIUM
     Route: 048
     Dates: start: 20200924
  3. BROTIZOLAM [Concomitant]
     Active Substance: BROTIZOLAM
     Indication: INSOMNIA
     Dosage: 0.25 MG, AS NEEDED
     Route: 048
     Dates: start: 20200716
  4. SOLDEM 1 [Concomitant]
     Active Substance: DEXTROSE\SODIUM CHLORIDE\SODIUM LACTATE
     Indication: PROPHYLAXIS
     Route: 042
     Dates: start: 20200719
  5. AZUNOL #1 [Concomitant]
     Indication: ANAL ERYTHEMA
     Dosage: AS NEEDED, ADEQUATE DOSE
     Route: 061
     Dates: start: 20200728
  6. MAGNESIUM OXIDE. [Concomitant]
     Active Substance: MAGNESIUM OXIDE
     Indication: CONSTIPATION
     Dosage: 330 MG/DOSE, AS NEEDED
     Route: 048
     Dates: start: 20200730
  7. LACTEC [Concomitant]
     Active Substance: CALCIUM CHLORIDE ANHYDROUS\POTASSIUM CHLORIDE\SODIUM CHLORIDE\SODIUM LACTATE
     Indication: SEPSIS
     Route: 042
     Dates: start: 20200905
  8. BONALON [Concomitant]
     Active Substance: ALENDRONATE SODIUM
     Indication: OSTEOPOROSIS PROPHYLAXIS
     Route: 048
     Dates: start: 20200716
  9. E KEPPRA [Concomitant]
     Active Substance: LEVETIRACETAM
     Indication: EPILEPSY
     Route: 048
     Dates: start: 20200814, end: 20200916
  10. TAMSULOSIN HYDROCHLORIDE OD [Concomitant]
     Active Substance: TAMSULOSIN HYDROCHLORIDE
     Indication: URINARY RETENTION
     Dosage: 0.2 MG, ONCE DAILY
     Route: 048
     Dates: start: 20201006
  11. AS3156378 [Suspect]
     Active Substance: AZACITIDINE
     Indication: ACUTE MYELOID LEUKAEMIA
     Dosage: 75 MG/M2, 7 DAYS
     Route: 058
     Dates: start: 20200727, end: 20200802
  12. ALFACALCIDOL [Concomitant]
     Active Substance: ALFACALCIDOL
     Indication: OSTEOPOROSIS PROPHYLAXIS
     Dosage: 0.25 ?G, ONCE DAILY
     Route: 048
     Dates: start: 201204
  13. PREDNISOLONE. [Concomitant]
     Active Substance: PREDNISOLONE
     Indication: MYALGIA
     Route: 048
     Dates: start: 20200714
  14. SODIUM PICOSULFATE [Concomitant]
     Active Substance: SODIUM PICOSULFATE
     Indication: CONSTIPATION
     Dosage: AS NEEDED, ADEQUATE DOSE
     Route: 048
     Dates: start: 20200728
  15. TRAZODONE [Concomitant]
     Active Substance: TRAZODONE HYDROCHLORIDE
     Indication: INSOMNIA
     Dosage: 25 MG/DOSE, AS NEEDED
     Route: 048
     Dates: start: 20200828
  16. FEBURIC [Concomitant]
     Active Substance: FEBUXOSTAT
     Indication: PROPHYLAXIS
     Route: 048
     Dates: start: 201904
  17. NEXIUM [Concomitant]
     Active Substance: ESOMEPRAZOLE MAGNESIUM
     Indication: GASTRITIS PROPHYLAXIS
     Route: 048
     Dates: start: 201906
  18. SOLDEM 1 [Concomitant]
     Active Substance: DEXTROSE\SODIUM CHLORIDE\SODIUM LACTATE
     Route: 042
     Dates: start: 20200904
  19. MOHRUS [Concomitant]
     Active Substance: KETOPROFEN
     Indication: BACK PAIN
     Dosage: UP TO 2 SHEETS/DAY, AS NEEDED
     Route: 050
     Dates: start: 20200725
  20. CEFTAZIDIME. [Concomitant]
     Active Substance: CEFTAZIDIME
     Dosage: UNK UNK, UNKNOWN FREQ.
     Route: 065
     Dates: start: 20201011
  21. ASP2215 [Suspect]
     Active Substance: GILTERITINIB
     Route: 048
     Dates: start: 20200930, end: 20201013
  22. MIYA-BM [Concomitant]
     Active Substance: CLOSTRIDIUM BUTYRICUM SPORES STRAIN M-55
     Indication: INFECTION PROPHYLAXIS
     Route: 048
     Dates: start: 20200715
  23. MIYA-BM [Concomitant]
     Active Substance: CLOSTRIDIUM BUTYRICUM SPORES STRAIN M-55
     Route: 048
     Dates: start: 20200929
  24. AMLODIPINE [AMLODIPINE BESILATE] [Concomitant]
     Active Substance: AMLODIPINE BESYLATE
     Indication: HYPERTENSION
     Route: 048
     Dates: start: 20200814
  25. NASEA OD [Concomitant]
     Active Substance: RAMOSETRON HYDROCHLORIDE
     Indication: PROPHYLAXIS OF NAUSEA AND VOMITING
     Dosage: 0.1 MG, ONCE DAILY
     Route: 048
     Dates: start: 20200901, end: 20200904
  26. BETAMETHASONE BUTYRATE PROPIONATE [Concomitant]
     Active Substance: BETAMETHASONE BUTYRATE PROPIONATE
     Indication: PRURIGO
     Dosage: AS NEEDED, ADEQUATE DOSE
     Route: 061
     Dates: start: 20200925
  27. ASP2215 [Suspect]
     Active Substance: GILTERITINIB
     Indication: ACUTE MYELOID LEUKAEMIA
     Route: 048
     Dates: start: 20200727, end: 20200904
  28. ACELIO [Concomitant]
     Active Substance: ACETAMINOPHEN
     Indication: SEPSIS
     Dosage: 1000 MG/DOSE, AS NEEDED
     Route: 042
     Dates: start: 20200905
  29. AMLODIPINE [AMLODIPINE BESILATE] [Concomitant]
     Active Substance: AMLODIPINE BESYLATE
     Indication: HYPERTENSION
     Route: 048
     Dates: start: 20200908, end: 20201014
  30. LOCOID [Concomitant]
     Active Substance: HYDROCORTISONE BUTYRATE
     Indication: PRURIGO
     Dosage: AS NEEDED, ADEQUATE DOSE
     Route: 061
     Dates: start: 20200925
  31. ITRACONAZOLE. [Concomitant]
     Active Substance: ITRACONAZOLE
     Indication: INFECTION PROPHYLAXIS
     Route: 048
     Dates: start: 20201002
  32. DAIPHEN [Concomitant]
     Active Substance: SULFAMETHOXAZOLE\TRIMETHOPRIM
     Indication: INFECTION PROPHYLAXIS
     Dosage: 1 DF, 2 TIMES/WEEK, 2 TIMES/DAY
     Route: 048
     Dates: start: 201904
  33. ALESION [Concomitant]
     Active Substance: EPINASTINE HYDROCHLORIDE
     Indication: PRURIGO
     Route: 048
     Dates: start: 20200715
  34. ALESION [Concomitant]
     Active Substance: EPINASTINE HYDROCHLORIDE
     Route: 048
     Dates: start: 20200925
  35. SOLDEM 1 [Concomitant]
     Active Substance: DEXTROSE\SODIUM CHLORIDE\SODIUM LACTATE
     Indication: PROPHYLAXIS AGAINST DEHYDRATION
     Route: 042
     Dates: start: 20200903
  36. E KEPPRA [Concomitant]
     Active Substance: LEVETIRACETAM
     Route: 048
     Dates: start: 20200924
  37. CEFTAZIDIME. [Concomitant]
     Active Substance: CEFTAZIDIME
     Indication: SEPSIS
     Route: 042
     Dates: start: 20200905, end: 20200930
  38. AS3156378 [Suspect]
     Active Substance: AZACITIDINE
     Dosage: 75 MG/M2, 7 DAYS
     Route: 058
     Dates: start: 20200901, end: 20200904
  39. CINAL [ASCORBIC ACID;CALCIUM PANTOTHENATE] [Concomitant]
     Indication: PRURIGO
     Route: 048
     Dates: start: 2019
  40. CINAL [ASCORBIC ACID;CALCIUM PANTOTHENATE] [Concomitant]
     Route: 048
     Dates: start: 20200925
  41. FLUCONAZOLE. [Concomitant]
     Active Substance: FLUCONAZOLE
     Indication: INFECTION PROPHYLAXIS
     Route: 048
     Dates: start: 20200715

REACTIONS (6)
  - Pneumonia aspiration [Recovered/Resolved]
  - Sepsis [Recovered/Resolved]
  - Disseminated intravascular coagulation [Not Recovered/Not Resolved]
  - Enterocolitis haemorrhagic [Recovered/Resolved]
  - Sepsis [Recovered/Resolved]
  - Epilepsy [Recovering/Resolving]

NARRATIVE: CASE EVENT DATE: 20200813
